FAERS Safety Report 11959456 (Version 1)
Quarter: 2016Q1

REPORT INFORMATION
  Report Type: Spontaneous
  Country: JP (occurrence: JP)
  Receive Date: 20160126
  Receipt Date: 20160126
  Transmission Date: 20160526
  Serious: Yes (Death)
  Sender: FDA-Public Use
  Company Number: JP-ASTRAZENECA-2016SE03236

PATIENT
  Age: 67 Year
  Sex: Female

DRUGS (2)
  1. TENELIA [Concomitant]
     Active Substance: TENELIGLIPTIN
  2. FORXIGA [Suspect]
     Active Substance: DAPAGLIFLOZIN
     Indication: TYPE 2 DIABETES MELLITUS
     Route: 048
     Dates: start: 20151229, end: 20160106

REACTIONS (1)
  - Liver abscess [Fatal]

NARRATIVE: CASE EVENT DATE: 20160106
